FAERS Safety Report 9312355 (Version 11)
Quarter: 2015Q1

REPORT INFORMATION
  Report Type: Spontaneous
  Country: US (occurrence: US)
  Receive Date: 20130528
  Receipt Date: 20150126
  Transmission Date: 20150721
  Serious: Yes (Other)
  Sender: FDA-Public Use
  Company Number: US-JNJFOC-20130513285

PATIENT
  Sex: Male
  Weight: 65.77 kg

DRUGS (4)
  1. RISPERDAL [Suspect]
     Active Substance: RISPERIDONE
     Indication: AUTISM
     Route: 048
     Dates: start: 2005
  2. SEROQUEL [Suspect]
     Active Substance: QUETIAPINE FUMARATE
     Indication: AUTISM
     Route: 048
  3. CLOZARIL [Suspect]
     Active Substance: CLOZAPINE
     Indication: PRODUCT USED FOR UNKNOWN INDICATION
     Route: 048
  4. RISPERDAL CONSTA [Suspect]
     Active Substance: RISPERIDONE
     Indication: AUTISM
     Route: 030

REACTIONS (16)
  - Secondary hypogonadism [Unknown]
  - Kyphosis [Not Recovered/Not Resolved]
  - Posture abnormal [Unknown]
  - Blood prolactin increased [Unknown]
  - Obesity [Not Recovered/Not Resolved]
  - Pituitary cyst [Unknown]
  - Gait disturbance [Not Recovered/Not Resolved]
  - Speech disorder [Unknown]
  - Eye movement disorder [Unknown]
  - Diabetes mellitus [Unknown]
  - Cerebral dysgenesis [Not Recovered/Not Resolved]
  - Emotional distress [Recovered/Resolved]
  - Gynaecomastia [Not Recovered/Not Resolved]
  - Pituitary tumour benign [Unknown]
  - Tardive dyskinesia [Recovering/Resolving]
  - Lethargy [Unknown]
